FAERS Safety Report 20635441 (Version 1)
Quarter: 2022Q1

REPORT INFORMATION
  Report Type: Spontaneous
  Country: US (occurrence: None)
  Receive Date: 20220324
  Receipt Date: 20220324
  Transmission Date: 20220423
  Serious: No
  Sender: FDA-Public Use
  Company Number: None

PATIENT
  Age: 47 Day
  Sex: Female

DRUGS (1)
  1. PROPRANOLOL [Suspect]
     Active Substance: PROPRANOLOL HYDROCHLORIDE

REACTIONS (12)
  - Feeling cold [None]
  - Decreased activity [None]
  - Feeling abnormal [None]
  - Body temperature decreased [None]
  - Haemangioma [None]
  - Hypothermia [None]
  - Hypotension [None]
  - Lethargy [None]
  - Hypotension [None]
  - Accidental overdose [None]
  - Product preparation error [None]
  - Toxicity to various agents [None]

NARRATIVE: CASE EVENT DATE: 20220205
